FAERS Safety Report 14393000 (Version 1)
Quarter: 2018Q1

REPORT INFORMATION
  Report Type: Spontaneous
  Country: US (occurrence: US)
  Receive Date: 20180112
  Receipt Date: 20180112
  Transmission Date: 20180509
  Serious: Yes (Hospitalization)
  Sender: FDA-Public Use
  Company Number: None

PATIENT
  Sex: Female

DRUGS (2)
  1. ACETAMINOPHEN. [Concomitant]
     Active Substance: ACETAMINOPHEN
  2. CIPROFLOXACIN. [Suspect]
     Active Substance: CIPROFLOXACIN
     Indication: URINARY TRACT INFECTION
     Route: 048
     Dates: start: 20170903, end: 20170909

REACTIONS (17)
  - Migraine [None]
  - Hypoaesthesia [None]
  - Respiratory rate decreased [None]
  - Paraesthesia [None]
  - Nausea [None]
  - Photophobia [None]
  - Ear discomfort [None]
  - Panic attack [None]
  - Vertigo [None]
  - Contusion [None]
  - Tremor [None]
  - Nightmare [None]
  - Head discomfort [None]
  - Visual impairment [None]
  - Hallucination, auditory [None]
  - Hyperacusis [None]
  - Muscular weakness [None]

NARRATIVE: CASE EVENT DATE: 20170914
